FAERS Safety Report 10263607 (Version 1)
Quarter: 2014Q2

REPORT INFORMATION
  Report Type: Spontaneous
  Country: AT (occurrence: AT)
  Receive Date: 20140626
  Receipt Date: 20140626
  Transmission Date: 20141212
  Serious: Yes (Other)
  Sender: FDA-Public Use
  Company Number: PHHY2014AT077025

PATIENT
  Age: 83 Year
  Sex: Female

DRUGS (14)
  1. PANTOPRAZOLE [Suspect]
  2. MELOXICAM [Interacting]
  3. SERTRALINE [Interacting]
  4. SIMVASTATIN [Interacting]
  5. LEVOTHYROXINE [Interacting]
  6. DABIGATRAN [Interacting]
     Dosage: 150 MG, BID
  7. PHENPROCOUMON [Concomitant]
  8. INDAPAMIDE [Concomitant]
  9. RAMIPRIL [Concomitant]
  10. DIGITOXIN [Concomitant]
  11. NEBIVOLOL [Concomitant]
  12. FUROSEMIDE [Concomitant]
  13. RISPERIDONE [Concomitant]
  14. RIVASTIGMIN [Concomitant]

REACTIONS (9)
  - Gastrointestinal haemorrhage [Recovered/Resolved]
  - Renal impairment [Unknown]
  - Creatinine renal clearance decreased [Unknown]
  - Melaena [Unknown]
  - Drug interaction [Unknown]
  - Prothrombin time shortened [Unknown]
  - Activated partial thromboplastin time prolonged [Unknown]
  - Chronic gastritis [Unknown]
  - Anaemia [Unknown]
